FAERS Safety Report 4440044-7 (Version None)
Quarter: 2004Q3

REPORT INFORMATION
  Report Type: 
  Country: None (occurrence: None)
  Receive Date: 20040902
  Receipt Date: 20040723
  Transmission Date: 20050211
  Serious: Yes (Life-Threatening)
  Sender: FDA-Public Use
  Company Number: PHBS2004JP09791

PATIENT
  Age: 1 Day
  Sex: Female
  Weight: 2 kg

DRUGS (1)
  1. DIOVAN [Suspect]
     Route: 064

REACTIONS (15)
  - ANURIA [None]
  - CHEST X-RAY ABNORMAL [None]
  - DIAPHRAGMATIC DISORDER [None]
  - DRUG EXPOSURE DURING PREGNANCY [None]
  - HYPOTENSION [None]
  - NEONATAL ASPHYXIA [None]
  - PERSISTENT FOETAL CIRCULATION [None]
  - PNEUMOMEDIASTINUM [None]
  - PO2 DECREASED [None]
  - PULMONARY FUNCTION TEST ABNORMAL [None]
  - RENAL FAILURE ACUTE [None]
  - RESPIRATORY DISTRESS [None]
  - RESUSCITATION [None]
  - SKIN DISORDER [None]
  - SKULL MALFORMATION [None]
